FAERS Safety Report 21141121 (Version 1)
Quarter: 2022Q3

REPORT INFORMATION
  Report Type: Report from Study
  Country: IT (occurrence: IT)
  Receive Date: 20220728
  Receipt Date: 20220728
  Transmission Date: 20221026
  Serious: Yes (Hospitalization)
  Sender: FDA-Public Use
  Company Number: None

PATIENT
  Age: 55 Year
  Sex: Male

DRUGS (12)
  1. TACROLIMUS [Interacting]
     Active Substance: TACROLIMUS
     Indication: Product used for unknown indication
  2. BROMAZEPAM [Interacting]
     Active Substance: BROMAZEPAM
     Indication: Panic attack
     Dosage: STRENGTH: 2.5 MG / ML, ORAL DROPS SOLUTION, TOTAL
     Dates: start: 20220505, end: 20220505
  3. LYRICA [Concomitant]
     Active Substance: PREGABALIN
  4. MYFORTIC [Concomitant]
     Active Substance: MYCOPHENOLATE SODIUM
     Dosage: STRENGTH: 360 MG
  5. CALCITRIOL [Concomitant]
     Active Substance: CALCITRIOL
  6. OMEGA 3 [Concomitant]
     Active Substance: CAPSAICIN
     Dosage: STRENGTH: 1000 MG
  7. POTASSIUM CHLORIDE [Concomitant]
     Active Substance: POTASSIUM CHLORIDE
     Dosage: STRENGTH: 600 MG
  8. LANSOPRAZOLE [Concomitant]
     Active Substance: LANSOPRAZOLE
     Dosage: STRENGTH: 30 MG
  9. NORVASC [Concomitant]
     Active Substance: AMLODIPINE BESYLATE
     Dosage: STRENGTH: 5 MG
  10. ASPIRIN [Concomitant]
     Active Substance: ASPIRIN
  11. EZETIMIBE [Concomitant]
     Active Substance: EZETIMIBE
  12. MEDROL [Concomitant]
     Active Substance: METHYLPREDNISOLONE
     Dosage: STRENGTH: 4 MG

REACTIONS (6)
  - Sopor [Recovering/Resolving]
  - Accidental overdose [Unknown]
  - Vomiting [Recovering/Resolving]
  - Immunosuppressant drug level increased [Unknown]
  - Toxicity to various agents [Unknown]
  - Drug interaction [Unknown]

NARRATIVE: CASE EVENT DATE: 20220505
